FAERS Safety Report 6290907-5 (Version None)
Quarter: 2009Q3

REPORT INFORMATION
  Report Type: 
  Country: None (occurrence: None)
  Receive Date: 20090730
  Receipt Date: 20090619
  Transmission Date: 20100115
  Serious: Yes (Death)
  Sender: FDA-Public Use
  Company Number: PHHY2009JP14763

PATIENT
  Sex: Male
  Weight: 92 kg

DRUGS (5)
  1. DIOVAN [Suspect]
     Indication: HYPERTENSION
     Dosage: 80 MG ONCE DAILY
     Route: 048
     Dates: start: 20071012, end: 20081120
  2. LIPITOR [Concomitant]
     Dosage: 10 MG
     Route: 048
     Dates: start: 20070605
  3. NOVORAPID [Concomitant]
     Dosage: 30 IU
     Route: 058
  4. LANTUS [Concomitant]
     Dosage: 18 IU
     Route: 058
  5. MELBIN [Concomitant]
     Dosage: 750 MG
     Route: 058
     Dates: end: 20080130

REACTIONS (2)
  - CHEST DISCOMFORT [None]
  - SUDDEN DEATH [None]
